FAERS Safety Report 4374389-6 (Version None)
Quarter: 2004Q2

REPORT INFORMATION
  Report Type: 
  Country: None (occurrence: None)
  Receive Date: 20040608
  Receipt Date: 20040608
  Transmission Date: 20050107
  Serious: Yes (Other)
  Sender: FDA-Public Use
  Company Number: None

PATIENT
  Age: 48 Year
  Sex: Male
  Weight: 95.2554 kg

DRUGS (2)
  1. EFFEXOR XR [Suspect]
     Indication: DEPRESSION
     Dosage: 150 MG DAY ORAL
     Route: 048
     Dates: start: 20020308, end: 20040607
  2. EFFEXOR XR [Suspect]
     Indication: STRESS SYMPTOMS
     Dosage: 150 MG DAY ORAL
     Route: 048
     Dates: start: 20020308, end: 20040607

REACTIONS (3)
  - ABNORMAL DREAMS [None]
  - ASTHENIA [None]
  - DRUG WITHDRAWAL SYNDROME [None]
